FAERS Safety Report 4335076-3 (Version None)
Quarter: 2004Q2

REPORT INFORMATION
  Report Type: 
  Country: None (occurrence: None)
  Receive Date: 20040405
  Receipt Date: 20040323
  Transmission Date: 20050107
  Serious: Yes (Death, Hospitalization)
  Sender: FDA-Public Use
  Company Number: STA-AE-04-MTX-112

PATIENT
  Age: 73 Year
  Sex: Female

DRUGS (4)
  1. METHOTREXATE [Suspect]
     Indication: RHEUMATOID ARTHRITIS
     Dosage: 15 MG 1X PER 1 WK
  2. DIDRONEL [Suspect]
     Dosage: 5 MG 2X PER 1 WK
  3. METOLAZONE [Suspect]
     Dosage: 5 MG 2X PER 1 WK
  4. PREDNISOLONE [Suspect]
     Dosage: 5 MG 1X PER 1 DAY

REACTIONS (16)
  - ASTHENIA [None]
  - COLD SWEAT [None]
  - COUGH [None]
  - DYSPNOEA EXERTIONAL [None]
  - GENERAL PHYSICAL HEALTH DETERIORATION [None]
  - NAUSEA [None]
  - OEDEMA PERIPHERAL [None]
  - PNEUMOCYSTIS CARINII INFECTION [None]
  - PNEUMONITIS [None]
  - RESPIRATORY RATE INCREASED [None]
  - SKIN TURGOR DECREASED [None]
  - TACHYCARDIA [None]
  - TACHYPNOEA [None]
  - TONGUE DRY [None]
  - URINARY TRACT INFECTION [None]
  - WEIGHT DECREASED [None]
